FAERS Safety Report 12087505 (Version 1)
Quarter: 2016Q1

REPORT INFORMATION
  Report Type: Spontaneous
  Country: US (occurrence: US)
  Receive Date: 20160217
  Receipt Date: 20160217
  Transmission Date: 20160526
  Serious: No
  Sender: FDA-Public Use
  Company Number: US-ALLERGAN-1515189US

PATIENT
  Age: 57 Year
  Sex: Female

DRUGS (5)
  1. REFRESH OPTIVE ADVANCED [Concomitant]
     Active Substance: CARBOXYMETHYLCELLULOSE SODIUM\GLYCERIN\POLYSORBATE 80
     Indication: EYE IRRITATION
     Dosage: 2-3 X QD
     Route: 047
  2. RESTASIS [Suspect]
     Active Substance: CYCLOSPORINE
     Indication: DRY EYE
     Dosage: 2 GTT, BID
     Route: 047
     Dates: start: 20150702
  3. FLAXSEED [Concomitant]
     Active Substance: FLAX SEED
     Indication: DRY EYE
  4. FISH OIL [Concomitant]
     Active Substance: FISH OIL
     Indication: DRY EYE
  5. DOXYCYCLINE. [Concomitant]
     Active Substance: DOXYCYCLINE
     Indication: DRY EYE
     Dosage: 100 MG, QD
     Route: 048

REACTIONS (3)
  - Drug intolerance [Unknown]
  - Incorrect product storage [Unknown]
  - Eye irritation [Recovering/Resolving]

NARRATIVE: CASE EVENT DATE: 20150702
